FAERS Safety Report 5221091-4 (Version None)
Quarter: 2007Q1

REPORT INFORMATION
  Report Type: 
  Country: None (occurrence: None)
  Receive Date: 20070126
  Receipt Date: 20070117
  Transmission Date: 20070707
  Serious: Yes (Other)
  Sender: FDA-Public Use
  Company Number: 2005UW10477

PATIENT
  Age: 56 Year
  Sex: Female
  Weight: 59 kg

DRUGS (11)
  1. ARIMIDEX [Suspect]
     Indication: BREAST CANCER
     Route: 048
     Dates: start: 20020101, end: 20050701
  2. ARIMIDEX [Suspect]
     Route: 048
     Dates: start: 20050901
  3. ALLERGY SHOTS [Concomitant]
  4. PREVACID [Concomitant]
  5. CALTRATE [Concomitant]
  6. CLARINEX [Concomitant]
  7. DARVOCET [Concomitant]
  8. MIACALCIN [Concomitant]
     Route: 045
  9. NEXIUM [Concomitant]
  10. MAXZIDE [Concomitant]
  11. ZOMETA [Concomitant]

REACTIONS (5)
  - BONE DENSITY DECREASED [None]
  - HYPOTRICHOSIS [None]
  - OEDEMA PERIPHERAL [None]
  - SCOLIOSIS [None]
  - WEIGHT INCREASED [None]
